FAERS Safety Report 5661368-1 (Version None)
Quarter: 2008Q1

REPORT INFORMATION
  Report Type: 
  Country: None (occurrence: None)
  Receive Date: 20080312
  Receipt Date: 20080305
  Transmission Date: 20080703
  Serious: Yes (Other)
  Sender: FDA-Public Use
  Company Number: US-JNJFOC-20070101079

PATIENT
  Sex: Female
  Weight: 102.06 kg

DRUGS (2)
  1. RISPERDAL [Suspect]
     Indication: BIPOLAR I DISORDER
     Route: 048
  2. LEXAPRO [Suspect]
     Indication: BIPOLAR I DISORDER
     Route: 048

REACTIONS (3)
  - BLOOD PROLACTIN INCREASED [None]
  - HYPOTHALAMO-PITUITARY DISORDER [None]
  - WEIGHT INCREASED [None]
